FAERS Safety Report 9896366 (Version 1)
Quarter: 2014Q1

REPORT INFORMATION
  Report Type: Spontaneous
  Country: US (occurrence: US)
  Receive Date: 20140213
  Receipt Date: 20140213
  Transmission Date: 20141002
  Serious: No
  Sender: FDA-Public Use
  Company Number: US-BRISTOL-MYERS SQUIBB COMPANY-19096502

PATIENT
  Age: 30 Year
  Sex: Female
  Weight: 59.86 kg

DRUGS (13)
  1. ABATACEPT SUBQ INJECTION 125MG/ML [Suspect]
  2. HUMALOG [Concomitant]
     Dosage: INJ
  3. CALTRATE [Concomitant]
     Dosage: 1 DF= 600TAB
  4. MAXALT [Concomitant]
     Dosage: TABS
  5. PREDNISONE [Concomitant]
     Dosage: TABS
  6. ZYRTEC [Concomitant]
     Dosage: TABS
  7. LANTUS [Concomitant]
     Dosage: INJ
  8. IMURAN [Concomitant]
     Dosage: TABS
  9. FOLGARD [Concomitant]
     Dosage: TABS
  10. FOLGARD [Concomitant]
  11. FOLIC ACID [Concomitant]
     Dosage: TABS
  12. MAXZIDE [Concomitant]
     Dosage: 25 TAB
  13. ZEGERID [Concomitant]
     Dosage: CAPS 20-1100

REACTIONS (1)
  - Streptococcal infection [Unknown]
